FAERS Safety Report 11920140 (Version 2)
Quarter: 2016Q1

REPORT INFORMATION
  Report Type: Spontaneous
  Country: US (occurrence: US)
  Receive Date: 20160115
  Receipt Date: 20160125
  Transmission Date: 20160526
  Serious: Yes (Death, Life-Threatening, Hospitalization)
  Sender: FDA-Public Use
  Company Number: US-BIOTEST-T 12/16

PATIENT
  Sex: Female

DRUGS (5)
  1. CYTOTOXIC ANTIBIOTICS AND RELATED SUBSTANCES [Concomitant]
     Indication: ADENOVIRUS INFECTION
  2. CIDOFOVIR. [Concomitant]
     Active Substance: CIDOFOVIR
     Dosage: ON HOSPITAL DAYS 3 AND 9
     Route: 042
  3. BRINCIDOFOVIR [Concomitant]
     Active Substance: BRINCIDOFOVIR
     Dosage: ON DAYS 17,20,24,27 AND 31
     Route: 048
  4. IVIG (NOT BIOTEST) [Suspect]
     Active Substance: HUMAN IMMUNOGLOBULIN G
     Indication: ADENOVIRUS INFECTION
     Dosage: 400 MG/KG/DOSE ON DAYS 5, 6, 8, 10,12,14, 16, 24 AND 31.
     Route: 042
  5. RIBAVIRIN. [Concomitant]
     Active Substance: RIBAVIRIN
     Indication: ADENOVIRUS INFECTION

REACTIONS (8)
  - Hepatitis cholestatic [Not Recovered/Not Resolved]
  - Adenovirus infection [Fatal]
  - Dyshidrotic eczema [Not Recovered/Not Resolved]
  - Respiratory failure [Fatal]
  - Drug ineffective [Not Recovered/Not Resolved]
  - Exfoliative rash [Not Recovered/Not Resolved]
  - Pneumonitis [Not Recovered/Not Resolved]
  - Mental status changes [Not Recovered/Not Resolved]
